FAERS Safety Report 4502867-5 (Version None)
Quarter: 2004Q4

REPORT INFORMATION
  Report Type: 
  Country: None (occurrence: None)
  Receive Date: 20041112
  Receipt Date: 20041027
  Transmission Date: 20050328
  Serious: Yes (Death)
  Sender: FDA-Public Use
  Company Number: 9161

PATIENT
  Age: 50 Year

DRUGS (2)
  1. MORPHINE [Suspect]
     Indication: INTERVERTEBRAL DISC PROTRUSION
  2. MORPHINE [Suspect]
     Indication: PAIN

REACTIONS (5)
  - CARDIOMEGALY [None]
  - COMA [None]
  - CYANOSIS [None]
  - OXYGEN SATURATION DECREASED [None]
  - SUDDEN CARDIAC DEATH [None]
